FAERS Safety Report 16520151 (Version 1)
Quarter: 2019Q3

REPORT INFORMATION
  Report Type: Spontaneous
  Country: US (occurrence: US)
  Receive Date: 20190702
  Receipt Date: 20190702
  Transmission Date: 20191004
  Serious: No
  Sender: FDA-Public Use
  Company Number: US-TARO-2019TAR00145

PATIENT
  Age: 64 Year
  Sex: Female

DRUGS (2)
  1. ACETAZOLAMIDE TABLETS 250 MG [Suspect]
     Active Substance: ACETAZOLAMIDE
     Indication: CARDIAC FAILURE
     Dosage: 250 MG, 1X/DAY
     Dates: start: 201902, end: 201902
  2. ACETAZOLAMIDE TABLETS 250 MG [Suspect]
     Active Substance: ACETAZOLAMIDE
     Dosage: DECREASED DOSE
     Dates: start: 201902, end: 201902

REACTIONS (8)
  - Scab [Recovering/Resolving]
  - Skin lesion [Recovering/Resolving]
  - Urinary incontinence [Recovered/Resolved]
  - Heart rate irregular [Recovering/Resolving]
  - Swelling [Recovering/Resolving]
  - Nausea [Recovering/Resolving]
  - Fall [Recovered/Resolved]
  - Cardiac hypertrophy [Recovering/Resolving]

NARRATIVE: CASE EVENT DATE: 201902
